FAERS Safety Report 17133611 (Version 1)
Quarter: 2019Q4

REPORT INFORMATION
  Report Type: Spontaneous
  Country: US (occurrence: US)
  Receive Date: 20191118
  Receipt Date: 20191118
  Transmission Date: 20200122
  Serious: Yes (Hospitalization)
  Sender: FDA-Public Use
  Company Number: None

PATIENT
  Age: 67 Year
  Sex: Female

DRUGS (10)
  1. PREDNISONE. [Concomitant]
     Active Substance: PREDNISONE
  2. ORENCIA [Suspect]
     Active Substance: ABATACEPT
     Route: 058
     Dates: start: 20181204
  3. DESONIDE OIN [Concomitant]
  4. TRILIPIX [Concomitant]
     Active Substance: FENOFIBRIC ACID
  5. ATENOLOL. [Concomitant]
     Active Substance: ATENOLOL
  6. CLOBETASOL CRE [Concomitant]
  7. METHOTREXATE. [Concomitant]
     Active Substance: METHOTREXATE
  8. LEVOTHYROXINE. [Concomitant]
     Active Substance: LEVOTHYROXINE
  9. LIPITOR [Concomitant]
     Active Substance: ATORVASTATIN CALCIUM
  10. FARXIGA [Concomitant]
     Active Substance: DAPAGLIFLOZIN PROPANEDIOL

REACTIONS (2)
  - Knee arthroplasty [None]
  - Therapy cessation [None]

NARRATIVE: CASE EVENT DATE: 20191022
